FAERS Safety Report 9928363 (Version 3)
Quarter: 2014Q2

REPORT INFORMATION
  Report Type: Spontaneous
  Country: CN (occurrence: CN)
  Receive Date: 20140227
  Receipt Date: 20140523
  Transmission Date: 20141212
  Serious: Yes (Death, Other)
  Sender: FDA-Public Use
  Company Number: CN-009507513-1402CHN012992

PATIENT
  Age: 25 Year
  Sex: Male

DRUGS (5)
  1. DIPROSPAN [Suspect]
     Indication: KELOID SCAR
     Dosage: 2 ML, ONCE; DILUTED IN LIDOCAINE (1:1)
     Route: 059
     Dates: start: 20140224, end: 20140224
  2. LIDOCAINE [Suspect]
     Indication: ANAESTHESIA
     Dosage: UNK, ONCE
     Route: 059
     Dates: start: 20140224, end: 20140224
  3. ISOTRETINOIN [Concomitant]
     Indication: KELOID SCAR
     Dosage: 1 DF, ONCE
     Route: 048
     Dates: start: 20140224, end: 20140224
  4. EBASTINE [Concomitant]
     Indication: KELOID SCAR
     Dosage: 1 DF, ONCE
     Route: 048
     Dates: start: 20140224, end: 20140224
  5. REN SU [Concomitant]
     Indication: KELOID SCAR
     Dosage: 1 DF, ONCE
     Route: 048
     Dates: start: 20140224, end: 20140224

REACTIONS (8)
  - Death [Fatal]
  - Acute respiratory failure [Fatal]
  - Circulatory collapse [Fatal]
  - Overdose [Unknown]
  - Motion sickness [Unknown]
  - Injection site pain [Unknown]
  - Injection site bruising [Unknown]
  - Hypersensitivity [Fatal]
